FAERS Safety Report 7005457-8 (Version None)
Quarter: 2010Q3

REPORT INFORMATION
  Report Type: 
  Country: None (occurrence: None)
  Receive Date: 20100921
  Receipt Date: 20100913
  Transmission Date: 20110219
  Serious: Yes (Death, Other)
  Sender: FDA-Public Use
  Company Number: UY-ROCHE-726824

PATIENT

DRUGS (2)
  1. PEGINTERFERON ALFA-2A [Suspect]
     Dosage: THERAPY DISCONTINUED.
     Route: 065
  2. RIBAVIRIN [Suspect]
     Dosage: 800 MG PER DAY OF RIBAVIRIN IN NON-GENOTYPE 1 OR 1,000 -1,200 MG DAILY IN GENOTYPE 1.  GENOTYPE 1
     Route: 065

REACTIONS (6)
  - ASTHENIA [None]
  - HEPATIC CIRRHOSIS [None]
  - PANIC ATTACK [None]
  - PULMONARY TUBERCULOSIS [None]
  - TUBERCULOUS PLEURISY [None]
  - UROSEPSIS [None]
